FAERS Safety Report 4913982-6 (Version None)
Quarter: 2006Q1

REPORT INFORMATION
  Report Type: 
  Country: None (occurrence: None)
  Receive Date: 20060216
  Receipt Date: 20050915
  Transmission Date: 20060701
  Serious: Yes (Hospitalization, Other)
  Sender: FDA-Public Use
  Company Number: US-MERCK-0509USA02466

PATIENT
  Age: 66 Year
  Sex: Male
  Weight: 105 kg

DRUGS (15)
  1. VIOXX [Suspect]
     Indication: KNEE OPERATION
     Route: 048
     Dates: start: 20030317, end: 20031028
  2. VIOXX [Suspect]
     Route: 048
     Dates: start: 20040406, end: 20040930
  3. AMARYL [Concomitant]
     Indication: DIABETES MELLITUS
     Route: 065
  4. ACTOS [Concomitant]
     Indication: DIABETES MELLITUS
     Route: 065
  5. GLUCOPHAGE [Concomitant]
     Indication: DIABETES MELLITUS
     Route: 065
  6. LIPITOR [Concomitant]
     Indication: BLOOD CHOLESTEROL INCREASED
     Route: 065
     Dates: start: 20000910
  7. DIOVAN HCT [Concomitant]
     Indication: FLUID RETENTION
     Route: 065
  8. COUMADIN [Concomitant]
     Indication: ANTICOAGULANT THERAPY
     Route: 065
     Dates: start: 20000910
  9. COUMADIN [Concomitant]
     Indication: ATRIAL FIBRILLATION
     Route: 065
     Dates: start: 20000910
  10. PRINIVIL [Concomitant]
     Indication: HYPERTENSION
     Route: 065
     Dates: start: 20021201, end: 20040901
  11. ZESTRIL [Concomitant]
     Indication: HYPERTENSION
     Route: 065
     Dates: start: 20021201, end: 20040901
  12. PERCOCET [Concomitant]
     Indication: PAIN
     Route: 065
     Dates: start: 20030428, end: 20030601
  13. [THERAPY UNSPECIFIED] [Concomitant]
     Route: 065
  14. TYLENOL [Concomitant]
     Route: 065
  15. DIGOXIN [Concomitant]
     Route: 065
     Dates: start: 20021201

REACTIONS (4)
  - CEREBROVASCULAR ACCIDENT [None]
  - CHEST PAIN [None]
  - PARALYSIS [None]
  - SLEEP APNOEA SYNDROME [None]
